FAERS Safety Report 19916614 (Version 2)
Quarter: 2022Q1

REPORT INFORMATION
  Report Type: Spontaneous
  Country: DE (occurrence: DE)
  Receive Date: 20211005
  Receipt Date: 20220302
  Transmission Date: 20220423
  Serious: Yes (Hospitalization, Other)
  Sender: FDA-Public Use
  Company Number: DE-MENARINI-DE-MEN-079824

PATIENT
  Sex: Female

DRUGS (1)
  1. IBUPROFEN [Suspect]
     Active Substance: IBUPROFEN
     Indication: Respiratory tract infection
     Route: 065

REACTIONS (3)
  - Eosinophilic pneumonia acute [Unknown]
  - Product use in unapproved indication [Unknown]
  - Eosinophilic myocarditis [Unknown]
